FAERS Safety Report 9026063 (Version 1)
Quarter: 2013Q1

REPORT INFORMATION
  Report Type: Spontaneous
  Country: US (occurrence: None)
  Receive Date: 20130107
  Receipt Date: 20130107
  Transmission Date: 20140127
  Serious: Yes (Hospitalization)
  Sender: FDA-Public Use
  Company Number: 2012-01909

PATIENT
  Age: 54 Year
  Sex: Female

DRUGS (7)
  1. CEFTRIAXONE SODIUM [Suspect]
     Indication: PNEUMONIA
     Dosage: 1 GM, (UNKNOWN, DAILY), INTRAVENOUS
     Route: 042
  2. AZITHROMYCIN [Suspect]
     Indication: SINUSITIS
     Route: 042
  3. TACROLIMUS (UNKNOWN) [Concomitant]
  4. ATORVASTATIN (UNKNOWN) [Concomitant]
  5. PREDNISONE (UNKNOWN) [Concomitant]
  6. CONJUGATD ESTR0GEN (UNKNOWN) [Concomitant]
  7. SUMATRIPTAN (UNKNOWN) (SUMATRIPTAN) [Concomitant]

REACTIONS (2)
  - Drug interaction [None]
  - Immunosuppressant drug level increased [None]
